FAERS Safety Report 17372411 (Version 2)
Quarter: 2020Q1

REPORT INFORMATION
  Report Type: Spontaneous
  Country: US (occurrence: US)
  Receive Date: 20200205
  Receipt Date: 20200320
  Transmission Date: 20200409
  Serious: No
  Sender: FDA-Public Use
  Company Number: US-ASTRAZENECA-2020SE04329

PATIENT
  Age: 21763 Day
  Sex: Male
  Weight: 72.1 kg

DRUGS (12)
  1. VIT D [Concomitant]
     Active Substance: VITAMIN D NOS
     Dosage: 2 50,000 U WEEKLY
  2. MG OXIDE [Concomitant]
     Dosage: 400MG--DOESN^T TAKE REGULARLY-ONCE EVERY 3 DAYS
  3. PULMICORT TURBUHALER [Suspect]
     Active Substance: BUDESONIDE
     Dosage: UNKOWN DOSE
     Route: 055
  4. ENALAPRIL [Concomitant]
     Active Substance: ENALAPRIL
     Dosage: 10 MG BID
  5. XANAX [Concomitant]
     Active Substance: ALPRAZOLAM
     Dosage: 0.5MG TID AS NEEDED
  6. SYMBICORT [Suspect]
     Active Substance: BUDESONIDE\FORMOTEROL FUMARATE DIHYDRATE
     Dosage: 160/4.5 MCG, UNKNOWN UNKNOWN
     Route: 055
  7. ATORVASTATIN [Concomitant]
     Active Substance: ATORVASTATIN
     Dosage: 20 MG DAY
  8. OXYCODONE [Concomitant]
     Active Substance: OXYCODONE
     Dosage: 5MG TAB 1 QHS
  9. ESOMEPROZOLE [Concomitant]
     Active Substance: ESOMEPRAZOLE
     Dosage: 40 MG BID, PRESCRIPTION
  10. ASPRIRIN [Concomitant]
     Dosage: 325 MG /DAY
  11. NITROGLYCERINE [Concomitant]
     Active Substance: NITROGLYCERIN
     Dosage: 0.4MG AS NEEDED FOR CHEST PAIN UP TO 3.
  12. HYDROCODONE [Concomitant]
     Active Substance: HYDROCODONE
     Dosage: 10/325 BID

REACTIONS (8)
  - Visual impairment [Unknown]
  - Dyspnoea [Unknown]
  - Feeling abnormal [Unknown]
  - Spinal disorder [Unknown]
  - Nephrolithiasis [Unknown]
  - Intentional device misuse [Unknown]
  - Product dose omission [Unknown]
  - Device issue [Unknown]

NARRATIVE: CASE EVENT DATE: 20200104
